FAERS Safety Report 4970283-8 (Version None)
Quarter: 2006Q2

REPORT INFORMATION
  Report Type: 
  Country: None (occurrence: None)
  Receive Date: 20060403
  Receipt Date: 20060217
  Transmission Date: 20061013
  Serious: Yes (Hospitalization)
  Sender: FDA-Public Use
  Company Number: 2006BH003591

PATIENT
  Age: 7 Year
  Sex: Female

DRUGS (3)
  1. IVEEGAM [Suspect]
     Indication: DRUG USE FOR UNKNOWN INDICATION
     Dosage: 7.5 GM; AS NEEDED; IV
     Route: 042
     Dates: start: 20060202, end: 20060202
  2. IVEEGAM [Suspect]
  3. ANTIHISTAMINES [Concomitant]

REACTIONS (3)
  - HYPOTENSION [None]
  - PYREXIA [None]
  - TACHYCARDIA [None]
